FAERS Safety Report 7275731-9 (Version None)
Quarter: 2011Q1

REPORT INFORMATION
  Report Type: 
  Country: None (occurrence: None)
  Receive Date: 20110202
  Receipt Date: 20110202
  Transmission Date: 20110831
  Serious: No
  Sender: FDA-Public Use
  Company Number: None

PATIENT
  Age: 36 Year
  Sex: Female
  Weight: 52.6173 kg

DRUGS (2)
  1. AMOXICILLIN AND CLAVULANATE POTASSIUM [Suspect]
     Indication: SINUSITIS
     Dosage: 1 TABLET BY MOUTH EVERY 12 HOURS PO
     Route: 048
     Dates: start: 20110114, end: 20110118
  2. AUGMENTIN '125' [Concomitant]

REACTIONS (3)
  - URTICARIA [None]
  - SWOLLEN TONGUE [None]
  - OROPHARYNGEAL PAIN [None]
